FAERS Safety Report 6834377-4 (Version None)
Quarter: 2010Q3

REPORT INFORMATION
  Report Type: 
  Country: None (occurrence: None)
  Receive Date: 20100712
  Receipt Date: 20100709
  Transmission Date: 20110219
  Serious: Yes (Hospitalization)
  Sender: FDA-Public Use
  Company Number: ES-BRISTOL-MYERS SQUIBB COMPANY-15184310

PATIENT
  Age: 69 Year
  Sex: Female

DRUGS (3)
  1. TAXOL [Suspect]
     Indication: OVARIAN CANCER
     Dosage: 8MG/ML; EVERY 9 DAYS.
     Route: 042
     Dates: start: 20100302, end: 20100302
  2. CISPLATIN [Suspect]
     Indication: OVARIAN CANCER
     Route: 042
     Dates: start: 20100303, end: 20100303
  3. NEUPOGEN [Suspect]
     Indication: OVARIAN CANCER
     Dosage: NEUPOGEN 30; 8 DAYS ONCE.
     Route: 058
     Dates: start: 20100304, end: 20100308

REACTIONS (2)
  - SKIN REACTION [None]
  - URTICARIA [None]
